FAERS Safety Report 6994271-5 (Version None)
Quarter: 2010Q3

REPORT INFORMATION
  Report Type: 
  Country: None (occurrence: None)
  Receive Date: 20100917
  Receipt Date: 20100517
  Transmission Date: 20110219
  Serious: No
  Sender: FDA-Public Use
  Company Number: US-ASTRAZENECA-2007UW02025

PATIENT
  Age: 45 Year
  Sex: Female
  Weight: 108 kg

DRUGS (14)
  1. SEROQUEL [Suspect]
     Indication: DEPRESSION
     Route: 048
     Dates: start: 20000501
  2. SEROQUEL [Suspect]
     Indication: HALLUCINATION, AUDITORY
     Route: 048
     Dates: start: 20000501
  3. SEROQUEL [Suspect]
     Indication: BIPOLAR DISORDER
     Route: 048
     Dates: start: 20000501
  4. SEROQUEL [Suspect]
     Route: 048
     Dates: start: 20080703
  5. SEROQUEL [Suspect]
     Route: 048
     Dates: start: 20080703
  6. SEROQUEL [Suspect]
     Route: 048
     Dates: start: 20080703
  7. RISPERDAL [Concomitant]
  8. ZOLOFT [Concomitant]
     Dates: start: 20080703
  9. METFORMIN HYDROCHLORIDE [Concomitant]
  10. LISINOPRIL [Concomitant]
     Dates: start: 20080703
  11. LIPITOR [Concomitant]
  12. HYDROCORT [Concomitant]
  13. BYETTA [Concomitant]
  14. GLYCOLAX [Concomitant]

REACTIONS (7)
  - BLOOD CHOLESTEROL INCREASED [None]
  - DIABETES MELLITUS INADEQUATE CONTROL [None]
  - HYPERCHOLESTEROLAEMIA [None]
  - HYPERGLYCAEMIA [None]
  - NEUROPATHY PERIPHERAL [None]
  - OBESITY [None]
  - TYPE 2 DIABETES MELLITUS [None]
